FAERS Safety Report 18960104 (Version 1)
Quarter: 2021Q1

REPORT INFORMATION
  Report Type: Spontaneous
  Country: AU (occurrence: AU)
  Receive Date: 20210302
  Receipt Date: 20210302
  Transmission Date: 20210420
  Serious: Yes (Hospitalization, Other)
  Sender: FDA-Public Use
  Company Number: AU-MYLANLABS-2021M1011989

PATIENT
  Age: 33 Year
  Sex: Female

DRUGS (1)
  1. TAMATE [Suspect]
     Active Substance: TOPIRAMATE
     Indication: PRODUCT USED FOR UNKNOWN INDICATION
     Dosage: UNK, QD, 2 DAILY

REACTIONS (3)
  - Seizure [Unknown]
  - Dizziness [Unknown]
  - Feeling hot [Unknown]
